FAERS Safety Report 15428160 (Version 5)
Quarter: 2019Q3

REPORT INFORMATION
  Report Type: Report from Study
  Country: CO (occurrence: CO)
  Receive Date: 20180926
  Receipt Date: 20190703
  Transmission Date: 20191004
  Serious: Yes (Hospitalization)
  Sender: FDA-Public Use
  Company Number: CO-ASTELLAS-2018US041684

PATIENT
  Age: 61 Year
  Sex: Female
  Weight: 54 kg

DRUGS (6)
  1. TACROLIMUS. [Suspect]
     Active Substance: TACROLIMUS
     Route: 048
  2. MYCOPHENOLATE [Concomitant]
     Active Substance: MYCOPHENOLIC ACID
     Indication: TRANSPLANT
     Dosage: 360 MG, OTHER (2 CAPSULES IN MORNING AND 1 CAPSULE AT NIGHT)
     Route: 065
     Dates: start: 20130911
  3. TACROLIMUS. [Suspect]
     Active Substance: TACROLIMUS
     Indication: RENAL TRANSPLANT
     Route: 048
     Dates: start: 20130911
  4. TACROLIMUS. [Suspect]
     Active Substance: TACROLIMUS
     Dosage: ONE DAY 3 MG AND OTHER DAY 4 MG
     Route: 048
  5. TACROLIMUS. [Suspect]
     Active Substance: TACROLIMUS
     Dosage: 2MG ONE DAY AND THE OTHER 3MG
     Route: 048
     Dates: end: 201902
  6. TACROLIMUS. [Suspect]
     Active Substance: TACROLIMUS
     Dosage: UNK UNK, UNKNOWN FREQ.
     Route: 048

REACTIONS (8)
  - Immunosuppressant drug level decreased [Not Recovered/Not Resolved]
  - Toxicity to various agents [Recovered/Resolved]
  - Diarrhoea [Recovering/Resolving]
  - Immunosuppressant drug level increased [Recovering/Resolving]
  - Gastritis [Not Recovered/Not Resolved]
  - Nausea [Recovering/Resolving]
  - Immunosuppressant drug level decreased [Recovering/Resolving]
  - Toxicity to various agents [Recovering/Resolving]

NARRATIVE: CASE EVENT DATE: 201805
